FAERS Safety Report 9902674 (Version 1)
Quarter: 2014Q1

REPORT INFORMATION
  Report Type: Spontaneous
  Country: US (occurrence: US)
  Receive Date: 20140217
  Receipt Date: 20140217
  Transmission Date: 20141002
  Serious: No
  Sender: FDA-Public Use
  Company Number: US-PFIZER INC-2014039182

PATIENT
  Age: 61 Year
  Sex: Male
  Weight: 100.68 kg

DRUGS (11)
  1. LYRICA [Suspect]
     Indication: NEUROPATHY PERIPHERAL
     Dosage: UNK
     Dates: start: 20131009
  2. ALEVE [Concomitant]
     Dosage: UNK
  3. ASPIRIN [Concomitant]
     Dosage: UNK
  4. CLARITIN [Concomitant]
     Dosage: UNK
  5. VASERETIC [Concomitant]
     Dosage: UNK
  6. IBUPROFEN [Concomitant]
     Dosage: UNK
  7. LOPID [Concomitant]
     Dosage: UNK
  8. MILK THISTLE [Concomitant]
     Dosage: UNK
  9. PROTOPIC OINTMENT [Concomitant]
     Dosage: UNK
  10. TACLONEX [Concomitant]
     Dosage: UNK
  11. ZOCOR [Concomitant]
     Dosage: UNK

REACTIONS (1)
  - Neuropathy peripheral [Unknown]
